FAERS Safety Report 9000154 (Version 1)
Quarter: 2013Q1

REPORT INFORMATION
  Report Type: Report from Study
  Country: CA (occurrence: CA)
  Receive Date: 20130102
  Receipt Date: 20130102
  Transmission Date: 20140127
  Serious: Yes (Other)
  Sender: FDA-Public Use
  Company Number: CA-JNJFOC-20121213566

PATIENT
  Sex: Female
  Weight: 94.1 kg

DRUGS (8)
  1. REMICADE [Suspect]
     Indication: COLITIS ULCERATIVE
     Route: 042
     Dates: start: 20121024
  2. REMICADE [Suspect]
     Indication: COLITIS ULCERATIVE
     Route: 042
     Dates: start: 20100913
  3. VITAMIN [Concomitant]
     Route: 065
  4. MULTIVITAMINS [Concomitant]
     Route: 065
  5. ALL OTHER THERAPEUTICS [Concomitant]
     Route: 065
  6. CALCIUM [Concomitant]
     Route: 065
  7. IRON [Concomitant]
     Route: 065
  8. IMURAN [Concomitant]
     Route: 048

REACTIONS (2)
  - Chest pain [Recovered/Resolved]
  - Migraine [Unknown]
